FAERS Safety Report 7103849-X (Version None)
Quarter: 2010Q4

REPORT INFORMATION
  Report Type: 
  Country: None (occurrence: None)
  Receive Date: 20101115
  Receipt Date: 20101104
  Transmission Date: 20110411
  Serious: Yes (Other)
  Sender: FDA-Public Use
  Company Number: FR-ALLERGAN-1014145US

PATIENT
  Age: 75 Year
  Sex: Male

DRUGS (3)
  1. LUMIGAN SOLUTION 0.01% [Suspect]
     Indication: GLAUCOMA
     Dosage: 1 GTT, QD
     Dates: start: 20101001, end: 20101001
  2. PLAVIX [Concomitant]
  3. FLECAINIDE ACETATE [Concomitant]

REACTIONS (1)
  - BRADYCARDIA [None]
